FAERS Safety Report 6083479-1 (Version None)
Quarter: 2009Q1

REPORT INFORMATION
  Report Type: 
  Country: None (occurrence: None)
  Receive Date: 20090213
  Receipt Date: 20090213
  Transmission Date: 20090719
  Serious: No
  Sender: FDA-Public Use
  Company Number: None

PATIENT
  Sex: Male

DRUGS (7)
  1. AUGMENTIN '400' [Suspect]
     Dosage: 320 BID ORAL
     Route: 048
     Dates: start: 20090211, end: 20090212
  2. ERYTHROMYCIN OPTHALMIC OINTMENT [Concomitant]
  3. HYDROCORTISONE CREAM [Concomitant]
  4. HYDROLATED PETROLATUM [Concomitant]
  5. NASAL SALINE DROPS [Concomitant]
  6. OMNICEF [Concomitant]
  7. TYLENOL (CAPLET) [Concomitant]

REACTIONS (1)
  - GASTROINTESTINAL DISORDER [None]
